FAERS Safety Report 15433712 (Version 1)
Quarter: 2018Q3

REPORT INFORMATION
  Report Type: Report from Study
  Country: US (occurrence: US)
  Receive Date: 20180927
  Receipt Date: 20180927
  Transmission Date: 20181010
  Serious: Yes (Other)
  Sender: FDA-Public Use
  Company Number: US-ROCHE-2185802

PATIENT
  Age: 35 Year
  Sex: Female
  Weight: 91 kg

DRUGS (57)
  1. OCRELIZUMAB. [Suspect]
     Active Substance: OCRELIZUMAB
     Dosage: OLE?WEEK 144
     Route: 042
     Dates: start: 20161025, end: 20161025
  2. BENADRYL [Concomitant]
     Active Substance: DIPHENHYDRAMINE HYDROCHLORIDE
     Indication: THROAT IRRITATION
     Route: 065
     Dates: start: 20120206, end: 20120206
  3. DIPHENHYDRAMINE. [Concomitant]
     Active Substance: DIPHENHYDRAMINE
     Indication: PREMEDICATION
     Route: 065
     Dates: start: 20180320
  4. ZYRTEC [Concomitant]
     Active Substance: CETIRIZINE HYDROCHLORIDE
     Indication: PREMEDICATION
     Route: 065
     Dates: start: 20180320
  5. RECLIPSEN [Concomitant]
     Active Substance: DESOGESTREL\ETHINYL ESTRADIOL
     Indication: CONTRACEPTION
     Dosage: 1 TABLET
     Route: 065
     Dates: start: 200912
  6. DOXYCYCLINE. [Concomitant]
     Active Substance: DOXYCYCLINE
     Indication: WOUND ABSCESS
     Route: 065
     Dates: start: 20180404, end: 20180414
  7. OCRELIZUMAB. [Suspect]
     Active Substance: OCRELIZUMAB
     Dosage: OLE?WEEK 216
     Route: 042
     Dates: start: 20180320, end: 20180320
  8. BENADRYL [Concomitant]
     Active Substance: DIPHENHYDRAMINE HYDROCHLORIDE
     Indication: RASH
     Route: 065
     Dates: start: 20120221, end: 20120221
  9. METHYLPREDNISOLONE. [Concomitant]
     Active Substance: METHYLPREDNISOLONE
     Indication: PREMEDICATION
     Dosage: SUBSEQUENTLY RECEIVED ON 27/FEB/2012, 31/JUL/2012, 08/JAN/2013, 25/JUN/2013, 21/JAN/2014, 04/FEB/201
     Route: 065
     Dates: start: 20120206
  10. ZANAFLEX [Concomitant]
     Active Substance: TIZANIDINE HYDROCHLORIDE
     Indication: BACK PAIN
     Route: 065
     Dates: start: 20120131
  11. OXYCODONE [Concomitant]
     Active Substance: OXYCODONE
     Indication: BACK PAIN
     Dosage: 1 TABLET
     Route: 065
     Dates: start: 20121023
  12. ADDERALL [Concomitant]
     Active Substance: AMPHETAMINE ASPARTATE\AMPHETAMINE SULFATE\DEXTROAMPHETAMINE SACCHARATE\DEXTROAMPHETAMINE SULFATE
     Indication: MULTIPLE SCLEROSIS
     Route: 065
     Dates: start: 20180108
  13. OXYCODONE [Concomitant]
     Active Substance: OXYCODONE
     Indication: ANALGESIC THERAPY
     Route: 065
     Dates: start: 20180108
  14. TYLENOL [Concomitant]
     Active Substance: ACETAMINOPHEN
     Indication: ANALGESIC THERAPY
     Route: 065
     Dates: start: 20180108
  15. EFFER?K [Concomitant]
     Indication: HYPOKALAEMIA
     Route: 065
     Dates: start: 20180502, end: 20180502
  16. SUBOXONE [Concomitant]
     Active Substance: BUPRENORPHINE HYDROCHLORIDE\NALOXONE HYDROCHLORIDE
     Indication: PAIN
     Route: 065
     Dates: start: 201806
  17. PREDNISONE. [Concomitant]
     Active Substance: PREDNISONE
     Indication: FATIGUE
  18. PREDNISONE. [Concomitant]
     Active Substance: PREDNISONE
     Indication: VISUAL IMPAIRMENT
  19. OCRELIZUMAB. [Suspect]
     Active Substance: OCRELIZUMAB
     Dosage: WEEK 24
     Route: 042
     Dates: start: 20120731, end: 20120731
  20. OCRELIZUMAB. [Suspect]
     Active Substance: OCRELIZUMAB
     Dosage: OLE?WEEK 120
     Route: 042
     Dates: start: 20160510, end: 20160510
  21. BENADRYL [Concomitant]
     Active Substance: DIPHENHYDRAMINE HYDROCHLORIDE
     Indication: PREMEDICATION
     Dosage: SUBSEQUENTLY RECEIVED ON 27/FEB/2012, 31/JUL/2012, 08/JAN/2013, 25/JUN/2013, 21/JAN/2014, 04/FEB/201
     Route: 065
     Dates: start: 20120206
  22. BENADRYL [Concomitant]
     Active Substance: DIPHENHYDRAMINE HYDROCHLORIDE
     Indication: PAIN
     Route: 065
     Dates: start: 20130227, end: 20130227
  23. PREDNISONE. [Concomitant]
     Active Substance: PREDNISONE
     Indication: ASTHENIA
     Route: 065
     Dates: start: 20180619, end: 20180620
  24. OCRELIZUMAB. [Suspect]
     Active Substance: OCRELIZUMAB
     Indication: RELAPSING-REMITTING MULTIPLE SCLEROSIS
     Dosage: BASELINE (WEEK 1)?ON DAY 1 AND DAY 15 OF FIRST 24 WEEK CYCLE FOLLOWED BY DAY 1 OF EACH SUBSEQUENT 24
     Route: 042
     Dates: start: 20120206, end: 20120206
  25. OCRELIZUMAB. [Suspect]
     Active Substance: OCRELIZUMAB
     Dosage: OLE?WEEK 192
     Route: 042
     Dates: start: 20170926, end: 20170926
  26. BENADRYL [Concomitant]
     Active Substance: DIPHENHYDRAMINE HYDROCHLORIDE
     Indication: URTICARIA
     Route: 065
     Dates: start: 20120227, end: 20120227
  27. ADDERALL [Concomitant]
     Active Substance: AMPHETAMINE ASPARTATE\AMPHETAMINE SULFATE\DEXTROAMPHETAMINE SACCHARATE\DEXTROAMPHETAMINE SULFATE
     Indication: FATIGUE
     Route: 065
     Dates: start: 20170301
  28. OCRELIZUMAB. [Suspect]
     Active Substance: OCRELIZUMAB
     Dosage: WEEK 2
     Route: 042
     Dates: start: 20120227, end: 20120227
  29. OCRELIZUMAB. [Suspect]
     Active Substance: OCRELIZUMAB
     Dosage: WEEK 48
     Route: 042
     Dates: start: 20130108, end: 20130108
  30. PLACEBO [Suspect]
     Active Substance: UNSPECIFIED INGREDIENT
     Route: 058
     Dates: start: 20131220, end: 20140120
  31. BENADRYL [Concomitant]
     Active Substance: DIPHENHYDRAMINE HYDROCHLORIDE
     Dosage: 50 MG/ML
     Route: 065
     Dates: start: 20180502, end: 20180502
  32. ACETAMINOPHEN. [Concomitant]
     Active Substance: ACETAMINOPHEN
     Indication: PREMEDICATION
     Route: 065
     Dates: start: 20180320
  33. CLINDAMYCIN. [Concomitant]
     Active Substance: CLINDAMYCIN
     Indication: CELLULITIS
     Route: 065
     Dates: start: 20180618, end: 20180628
  34. LOVENOX [Concomitant]
     Active Substance: ENOXAPARIN SODIUM
     Indication: PROPHYLAXIS
     Dosage: PROPHYLACTIC DVT TREATMENT
     Route: 065
     Dates: start: 20180108
  35. SOLU?MEDROL [Concomitant]
     Active Substance: METHYLPREDNISOLONE SODIUM SUCCINATE
     Indication: VISION BLURRED
     Dosage: ANTI INFLAMMATORY
     Route: 065
     Dates: start: 20180108, end: 20180111
  36. CEPHALEXIN. [Concomitant]
     Active Substance: CEPHALEXIN
     Indication: URINARY TRACT INFECTION
     Route: 065
     Dates: start: 20180404, end: 20180411
  37. OCRELIZUMAB. [Suspect]
     Active Substance: OCRELIZUMAB
     Dosage: OLE?WEEK 168
     Route: 042
     Dates: start: 20170411, end: 20170411
  38. TYLENOL [Concomitant]
     Active Substance: ACETAMINOPHEN
     Indication: PREMEDICATION
     Dosage: SUBSEQUENTLY RECEIVED ON 27/FEB/2012, 31/JUL/2012, 08/JAN/2013, 25/JUN/2013, 21/JAN/2014, 04/FEB/201
     Route: 065
     Dates: start: 20120206
  39. MOTRIN [Concomitant]
     Active Substance: IBUPROFEN
     Indication: PAIN
     Route: 065
     Dates: start: 201111
  40. MONOLAURIN [Concomitant]
     Indication: PROPHYLAXIS
     Route: 065
     Dates: start: 20141202
  41. ACYCLOVIR. [Concomitant]
     Active Substance: ACYCLOVIR
     Indication: PROPHYLAXIS
     Route: 065
     Dates: start: 20180108
  42. OCRELIZUMAB. [Suspect]
     Active Substance: OCRELIZUMAB
     Indication: RELAPSING-REMITTING MULTIPLE SCLEROSIS
     Dosage: OLE?WEEK 0?300 MG INFUSIONS ON DAYS 1 AND 15 FOR THE FIRST DOSE AND AS A SINGLE INFUSION OF 600 MG F
     Route: 042
     Dates: start: 20140121, end: 20140121
  43. OCRELIZUMAB. [Suspect]
     Active Substance: OCRELIZUMAB
     Dosage: OLE?WEEK 2
     Route: 042
     Dates: start: 20140204, end: 20140204
  44. OCRELIZUMAB. [Suspect]
     Active Substance: OCRELIZUMAB
     Dosage: OLE?WEEK 24
     Route: 042
     Dates: start: 20140708, end: 20140708
  45. OCRELIZUMAB. [Suspect]
     Active Substance: OCRELIZUMAB
     Dosage: OLE?WEEK 72
     Route: 042
     Dates: start: 20150609, end: 20150609
  46. SOLU?MEDROL [Concomitant]
     Active Substance: METHYLPREDNISOLONE SODIUM SUCCINATE
     Route: 065
     Dates: start: 20180502, end: 20180502
  47. SOLU?MEDROL [Concomitant]
     Active Substance: METHYLPREDNISOLONE SODIUM SUCCINATE
     Route: 065
     Dates: start: 20180503, end: 20180505
  48. METOCHLOPRAMIDE [Concomitant]
     Active Substance: METOCLOPRAMIDE HYDROCHLORIDE
     Indication: PROPHYLAXIS OF NAUSEA AND VOMITING
     Dosage: 5 MG/ML
     Route: 065
     Dates: start: 20180502, end: 20180502
  49. FAMOTIDINE. [Concomitant]
     Active Substance: FAMOTIDINE
     Indication: PROPHYLAXIS OF NAUSEA AND VOMITING
     Route: 065
     Dates: start: 20180618, end: 20180620
  50. ONDANSETRON [Concomitant]
     Active Substance: ONDANSETRON
     Indication: PROPHYLAXIS OF NAUSEA AND VOMITING
     Route: 065
     Dates: start: 20180618
  51. CEPHALEXIN. [Concomitant]
     Active Substance: CEPHALEXIN
     Route: 065
     Dates: start: 20180502, end: 20180512
  52. OCRELIZUMAB. [Suspect]
     Active Substance: OCRELIZUMAB
     Dosage: WEEK 72
     Route: 042
     Dates: start: 20130625, end: 20130625
  53. PLACEBO [Suspect]
     Active Substance: UNSPECIFIED INGREDIENT
     Indication: RELAPSING-REMITTING MULTIPLE SCLEROSIS
     Route: 058
     Dates: start: 20120206
  54. OCRELIZUMAB. [Suspect]
     Active Substance: OCRELIZUMAB
     Dosage: OLE?WEEK 48
     Route: 042
     Dates: start: 20141218, end: 20141218
  55. OCRELIZUMAB. [Suspect]
     Active Substance: OCRELIZUMAB
     Dosage: OLE?WEEK 96
     Route: 042
     Dates: start: 20151124, end: 20151124
  56. TRAMADOL. [Concomitant]
     Active Substance: TRAMADOL
     Indication: PAIN
     Route: 065
     Dates: start: 201008
  57. CEFDINIR. [Concomitant]
     Active Substance: CEFDINIR
     Indication: PROPHYLAXIS
     Route: 065
     Dates: start: 20180108

REACTIONS (1)
  - Abscess limb [Recovered/Resolved]

NARRATIVE: CASE EVENT DATE: 20180403
